FAERS Safety Report 16043652 (Version 2)
Quarter: 2019Q1

REPORT INFORMATION
  Report Type: Report from Study
  Country: ES (occurrence: ES)
  Receive Date: 20190306
  Receipt Date: 20190314
  Transmission Date: 20190418
  Serious: Yes (Death)
  Sender: FDA-Public Use
  Company Number: ES-ASTRAZENECA-2019SE36852

PATIENT
  Sex: Female
  Weight: 87 kg

DRUGS (5)
  1. LACTULOSE. [Suspect]
     Active Substance: LACTULOSE
     Indication: PRODUCT USED FOR UNKNOWN INDICATION
     Dosage: 10 ML
     Route: 065
     Dates: start: 20140521
  2. PARAFFIN [Suspect]
     Active Substance: PARAFFIN
     Indication: CONSTIPATION
     Dosage: 10 ML
     Route: 065
     Dates: start: 20140521
  3. MORPHINE SULFATE. [Concomitant]
     Active Substance: MORPHINE SULFATE
  4. NALOXEGOL [Suspect]
     Active Substance: NALOXEGOL
     Indication: PRODUCT USED FOR UNKNOWN INDICATION
     Dosage: 12.5 UNKNOWN
     Route: 048
     Dates: start: 20180313
  5. FENTANYL. [Concomitant]
     Active Substance: FENTANYL

REACTIONS (1)
  - Disease progression [Fatal]
